FAERS Safety Report 4666104-3 (Version None)
Quarter: 2005Q2

REPORT INFORMATION
  Report Type: 
  Country: None (occurrence: None)
  Receive Date: 20050519
  Receipt Date: 20050513
  Transmission Date: 20051028
  Serious: Yes (Hospitalization)
  Sender: FDA-Public Use
  Company Number: JP-GLAXOSMITHKLINE-B0381038A

PATIENT
  Age: 68 Year
  Sex: Male

DRUGS (4)
  1. PAXIL [Suspect]
     Indication: DEPRESSION
     Route: 048
     Dates: start: 20020702, end: 20050417
  2. HARNAL [Concomitant]
     Route: 048
  3. HALCION [Concomitant]
     Route: 048
  4. ROHYPNOL [Concomitant]
     Route: 065

REACTIONS (1)
  - PARKINSON'S DISEASE [None]
